FAERS Safety Report 10486761 (Version 13)
Quarter: 2015Q4

REPORT INFORMATION
  Report Type: Report from Study
  Country: US (occurrence: US)
  Receive Date: 20141001
  Receipt Date: 20151211
  Transmission Date: 20160304
  Serious: Yes (Hospitalization, Disabling, Other)
  Sender: FDA-Public Use
  Company Number: US-SANOFI-AVENTIS-2013SA073041

PATIENT
  Age: 50 Year
  Sex: Female

DRUGS (2)
  1. AUBAGIO [Suspect]
     Active Substance: TERIFLUNOMIDE
     Indication: MULTIPLE SCLEROSIS
     Route: 048
     Dates: start: 20130625, end: 201509
  2. AUBAGIO [Suspect]
     Active Substance: TERIFLUNOMIDE
     Indication: MULTIPLE SCLEROSIS
     Route: 048

REACTIONS (26)
  - Cerebrovascular accident [Not Recovered/Not Resolved]
  - VIIth nerve paralysis [Unknown]
  - Cerebral disorder [Not Recovered/Not Resolved]
  - Hypoaesthesia [Not Recovered/Not Resolved]
  - Haematoma [Unknown]
  - Hypoaesthesia [Unknown]
  - Transient ischaemic attack [Unknown]
  - Unevaluable event [Unknown]
  - Fatigue [Not Recovered/Not Resolved]
  - Fluid retention [Unknown]
  - Hypoaesthesia [Unknown]
  - Posture abnormal [Unknown]
  - Gait disturbance [Recovering/Resolving]
  - Liver function test abnormal [Not Recovered/Not Resolved]
  - Infection [Unknown]
  - Multiple sclerosis relapse [Unknown]
  - Dysstasia [Unknown]
  - Central nervous system lesion [Unknown]
  - Aphasia [Unknown]
  - Weight increased [Not Recovered/Not Resolved]
  - Blood pressure increased [Recovering/Resolving]
  - Back disorder [Unknown]
  - Pain [Unknown]
  - Crying [Unknown]
  - Cognitive disorder [Unknown]
  - Back pain [Not Recovered/Not Resolved]

NARRATIVE: CASE EVENT DATE: 2015
